FAERS Safety Report 5498399-0 (Version None)
Quarter: 2007Q4

REPORT INFORMATION
  Report Type: 
  Country: None (occurrence: None)
  Receive Date: 20071025
  Receipt Date: 20071018
  Transmission Date: 20080405
  Serious: Yes (Death)
  Sender: FDA-Public Use
  Company Number: US-MERCK-0710USA04182

PATIENT
  Age: 55 Year
  Sex: Male

DRUGS (5)
  1. CANCIDAS [Suspect]
     Indication: BRONCHOPULMONARY ASPERGILLOSIS
     Route: 042
  2. CANCIDAS [Suspect]
     Route: 042
  3. VORICONAZOLE [Suspect]
     Indication: BRONCHOPULMONARY ASPERGILLOSIS
     Route: 042
  4. QUINUPRISTIN AND DALFOPRISTIN [Concomitant]
     Indication: ENTEROCOCCAL INFECTION
     Route: 065
  5. MEROPENEM [Concomitant]
     Indication: PNEUMONIA KLEBSIELLA
     Route: 065

REACTIONS (2)
  - DEATH [None]
  - DRUG INEFFECTIVE [None]
